FAERS Safety Report 8876514 (Version 3)
Quarter: 2013Q2

REPORT INFORMATION
  Report Type: Spontaneous
  Country: GB (occurrence: GB)
  Receive Date: 20121031
  Receipt Date: 20130614
  Transmission Date: 20140414
  Serious: Yes (Other)
  Sender: FDA-Public Use
  Company Number: GB-009507513-1210GBR013051

PATIENT
  Sex: Female

DRUGS (4)
  1. NEXPLANON [Suspect]
     Dosage: 68 MG, UNK
     Route: 058
     Dates: start: 20120117, end: 201210
  2. CETIRIZINE HYDROCHLORIDE [Concomitant]
  3. CITALOPRAM [Concomitant]
  4. ZOPICLONE [Concomitant]

REACTIONS (2)
  - Abortion induced [Recovered/Resolved]
  - Pregnancy with implant contraceptive [Recovered/Resolved with Sequelae]
